FAERS Safety Report 16201714 (Version 1)
Quarter: 2019Q2

REPORT INFORMATION
  Report Type: Spontaneous
  Country: CN (occurrence: CN)
  Receive Date: 20190416
  Receipt Date: 20190416
  Transmission Date: 20190711
  Serious: Yes (Other)
  Sender: FDA-Public Use
  Company Number: CN-FERRINGPH-2019FE02058

PATIENT

DRUGS (1)
  1. PROPESS [Suspect]
     Active Substance: DINOPROSTONE
     Indication: INDUCTION OF CERVIX RIPENING
     Dosage: 10 MG, QD [DAILY]
     Route: 067
     Dates: start: 20190320, end: 20190320

REACTIONS (2)
  - Pyrexia [Recovering/Resolving]
  - Uterine atony [Unknown]

NARRATIVE: CASE EVENT DATE: 201903
